FAERS Safety Report 5957302-7 (Version None)
Quarter: 2008Q4

REPORT INFORMATION
  Report Type: 
  Country: None (occurrence: None)
  Receive Date: 20081106
  Receipt Date: 20071017
  Transmission Date: 20090506
  Serious: Yes (Other)
  Sender: FDA-Public Use
  Company Number: US200710004426

PATIENT
  Age: 34 Year
  Sex: Female

DRUGS (5)
  1. PROZAC [Suspect]
     Indication: DEPRESSION
     Dosage: 40 MG, ORAL
     Route: 048
     Dates: start: 20070501
  2. ACTOS [Concomitant]
  3. METFORMIN HCL [Concomitant]
  4. VITAMINS NOS (VITAMINS NOS) [Concomitant]
  5. ORAL CONTRACEPTIVE NOS(ORAL CONTRACEPTIVE NOS) [Concomitant]

REACTIONS (3)
  - IRRITABILITY [None]
  - RESTLESSNESS [None]
  - UTERINE HAEMORRHAGE [None]
